FAERS Safety Report 9136188 (Version 1)
Quarter: 2013Q1

REPORT INFORMATION
  Report Type: Spontaneous
  Country: US (occurrence: US)
  Receive Date: 20130304
  Receipt Date: 20130304
  Transmission Date: 20140127
  Serious: Yes (Life-Threatening, Hospitalization, Disabling, Other)
  Sender: FDA-Public Use
  Company Number: US-GLAXOSMITHKLINE-A1013456A

PATIENT
  Age: 20 Year
  Sex: Female

DRUGS (2)
  1. VALTREX [Suspect]
     Indication: ORAL HERPES
     Route: 048
     Dates: start: 201302, end: 20130214
  2. NO CONCURRENT MEDICATION [Concomitant]

REACTIONS (6)
  - Renal failure [Recovering/Resolving]
  - Back pain [Recovering/Resolving]
  - Protein urine present [Recovering/Resolving]
  - Blood creatinine increased [Recovering/Resolving]
  - Confusional state [Recovering/Resolving]
  - Anxiety [Recovering/Resolving]
